FAERS Safety Report 7461774-9 (Version None)
Quarter: 2011Q2

REPORT INFORMATION
  Report Type: 
  Country: None (occurrence: None)
  Receive Date: 20110506
  Receipt Date: 20110413
  Transmission Date: 20111010
  Serious: Yes (Other)
  Sender: FDA-Public Use
  Company Number: US-BAYER-200825612NA

PATIENT
  Sex: Male

DRUGS (20)
  1. OMNISCAN [Suspect]
     Indication: NUCLEAR MAGNETIC RESONANCE IMAGING
  2. MULTIHANCE [Suspect]
     Indication: NUCLEAR MAGNETIC RESONANCE IMAGING
  3. OMNISCAN [Suspect]
     Indication: ANGIOGRAM
  4. OPTIMARK [Suspect]
     Indication: ANGIOGRAM
  5. GADOLINIUM IN UNSPECIFIED DRUG [Suspect]
     Indication: NUCLEAR MAGNETIC RESONANCE IMAGING
     Dosage: UNK
     Dates: start: 20021105, end: 20021105
  6. COUMADIN [Concomitant]
  7. CLONIDINE [Concomitant]
  8. TEMAZ [Concomitant]
  9. PROHANCE [Suspect]
     Indication: NUCLEAR MAGNETIC RESONANCE IMAGING
  10. OPTIMARK [Suspect]
     Indication: NUCLEAR MAGNETIC RESONANCE IMAGING
  11. FOSRENOL [Concomitant]
  12. MAGNEVIST [Suspect]
     Indication: NUCLEAR MAGNETIC RESONANCE IMAGING
     Dosage: UNK
     Dates: start: 20021115, end: 20021115
  13. MAGNEVIST [Suspect]
     Indication: ANGIOGRAM
     Dosage: 15 ML, ONCE
     Route: 042
     Dates: start: 20021016, end: 20021016
  14. MAGNEVIST [Suspect]
     Dosage: UNK
     Dates: start: 20040716, end: 20040716
  15. PROHANCE [Suspect]
     Indication: ANGIOGRAM
  16. MAGNEVIST [Suspect]
     Dosage: UNK
     Dates: start: 20050125, end: 20050125
  17. MULTIHANCE [Suspect]
     Indication: ANGIOGRAM
  18. NOVOLIN R [Concomitant]
  19. INSULIN [INSULIN] [Concomitant]
  20. ACCUPRIL [Concomitant]

REACTIONS (15)
  - SKIN TIGHTNESS [None]
  - EXTREMITY CONTRACTURE [None]
  - MYOSCLEROSIS [None]
  - OEDEMA PERIPHERAL [None]
  - SKIN INDURATION [None]
  - MUSCLE TIGHTNESS [None]
  - NEPHROGENIC SYSTEMIC FIBROSIS [None]
  - ANHEDONIA [None]
  - MUSCLE FIBROSIS [None]
  - INJURY [None]
  - PAIN [None]
  - ANXIETY [None]
  - EMOTIONAL DISTRESS [None]
  - JOINT CONTRACTURE [None]
  - JOINT RANGE OF MOTION DECREASED [None]
